FAERS Safety Report 15355243 (Version 1)
Quarter: 2018Q3

REPORT INFORMATION
  Report Type: Spontaneous
  Country: US (occurrence: US)
  Receive Date: 20180830
  Receipt Date: 20180830
  Transmission Date: 20181010
  Serious: No
  Sender: FDA-Public Use
  Company Number: None

PATIENT
  Age: 27 Year
  Sex: Female
  Weight: 71.1 kg

DRUGS (1)
  1. LEVOTHYROXINE. [Suspect]
     Active Substance: LEVOTHYROXINE
     Indication: HYPOTHYROIDISM
     Route: 048
     Dates: start: 20180715, end: 20180829

REACTIONS (7)
  - Panic attack [None]
  - Heart rate increased [None]
  - Insomnia [None]
  - Dyspnoea [None]
  - Depression [None]
  - Anxiety [None]
  - Allergic reaction to excipient [None]

NARRATIVE: CASE EVENT DATE: 20180830
